FAERS Safety Report 22592096 (Version 7)
Quarter: 2024Q3

REPORT INFORMATION
  Report Type: Report from Study
  Country: JP (occurrence: JP)
  Receive Date: 20230612
  Receipt Date: 20240806
  Transmission Date: 20241016
  Serious: Yes (Other)
  Sender: NOVARTIS
  Company Number: JP-002147023-NVSC2022JP299781

PATIENT
  Age: 76 Year
  Sex: Male
  Weight: 61 kg

DRUGS (9)
  1. LUTATHERA [Suspect]
     Active Substance: LUTETIUM OXODOTREOTIDE LU-177
     Indication: Neuroendocrine tumour
     Dosage: 7.4 GBQ
     Route: 065
     Dates: start: 20220707, end: 20220707
  2. LUTATHERA [Suspect]
     Active Substance: LUTETIUM OXODOTREOTIDE LU-177
     Dosage: 7.5 GBQ
     Route: 042
     Dates: start: 20220901, end: 20220901
  3. LUTATHERA [Suspect]
     Active Substance: LUTETIUM OXODOTREOTIDE LU-177
     Dosage: 7.4 GBQ
     Route: 042
     Dates: start: 20221027, end: 20221027
  4. LUTATHERA [Suspect]
     Active Substance: LUTETIUM OXODOTREOTIDE LU-177
     Dosage: 4.1 GBQ
     Route: 042
     Dates: start: 20221222, end: 20221222
  5. ARGININE\LYSINE [Suspect]
     Active Substance: ARGININE\LYSINE
     Indication: Product used for unknown indication
     Dosage: UNK
     Route: 042
     Dates: start: 20220707
  6. ARGININE\LYSINE [Suspect]
     Active Substance: ARGININE\LYSINE
     Dosage: UNK
     Route: 042
     Dates: start: 20220901, end: 20220901
  7. ARGININE\LYSINE [Suspect]
     Active Substance: ARGININE\LYSINE
     Dosage: UNK
     Route: 042
     Dates: start: 20221027, end: 20221027
  8. ARGININE\LYSINE [Suspect]
     Active Substance: ARGININE\LYSINE
     Dosage: UNK
     Route: 042
  9. PRIMPERAN [Concomitant]
     Active Substance: METOCLOPRAMIDE HYDROCHLORIDE
     Indication: Prophylaxis of nausea and vomiting
     Dosage: 1V, 10 MG
     Route: 065

REACTIONS (15)
  - Pancytopenia [Not Recovered/Not Resolved]
  - Lymphopenia [Recovered/Resolved]
  - Anaemia [Recovering/Resolving]
  - White blood cell count decreased [Not Recovered/Not Resolved]
  - Renal impairment [Not Recovered/Not Resolved]
  - Concomitant disease aggravated [Not Recovered/Not Resolved]
  - Hypertension [Recovered/Resolved]
  - Platelet count decreased [Not Recovered/Not Resolved]
  - White blood cell count decreased [Recovered/Resolved]
  - Constipation [Recovered/Resolved]
  - Nausea [Recovering/Resolving]
  - Monocyte count increased [Recovering/Resolving]
  - Blood pressure diastolic increased [Unknown]
  - Blood pressure systolic increased [Unknown]
  - Tension [Unknown]

NARRATIVE: CASE EVENT DATE: 20220708
